FAERS Safety Report 6404506-5 (Version None)
Quarter: 2009Q4

REPORT INFORMATION
  Report Type: 
  Country: None (occurrence: None)
  Receive Date: 20091016
  Receipt Date: 20091007
  Transmission Date: 20100525
  Serious: Yes (Hospitalization, Other)
  Sender: FDA-Public Use
  Company Number: CA-JNJFOC-20091002558

PATIENT
  Sex: Female
  Weight: 86 kg

DRUGS (12)
  1. REMICADE [Suspect]
     Dosage: EVERY ^8 SEM^
     Route: 042
     Dates: start: 20050701, end: 20091001
  2. REMICADE [Suspect]
     Indication: RHEUMATOID ARTHRITIS
     Dosage: EVERY ^8 SEM^
     Route: 042
     Dates: start: 20050701, end: 20091001
  3. METFORMIN HYDROCHLORIDE [Concomitant]
  4. FOLIC ACID [Concomitant]
     Dosage: ^1 CO 2X/SEM^
  5. OMEPRAZOLE [Concomitant]
  6. HYDROXYCHLOROQUINE [Concomitant]
  7. RAMIPRIL [Concomitant]
  8. CRESTOR [Concomitant]
  9. AMRIX [Concomitant]
  10. BIOTENE [Concomitant]
  11. VENLAFAXINE [Concomitant]
  12. CELEBREX [Concomitant]

REACTIONS (1)
  - FOOT DEFORMITY [None]
